FAERS Safety Report 9017585 (Version 1)
Quarter: 2013Q1

REPORT INFORMATION
  Report Type: Report from Study
  Country: US (occurrence: US)
  Receive Date: 20130117
  Receipt Date: 20130117
  Transmission Date: 20140127
  Serious: Yes (Hospitalization)
  Sender: FDA-Public Use
  Company Number: US-BRISTOL-MYERS SQUIBB COMPANY-17204330

PATIENT
  Age: 62 Year
  Sex: Male
  Weight: 75 kg

DRUGS (15)
  1. BMS-936558 [Suspect]
     Indication: NON-SMALL CELL LUNG CANCER
     Dosage: LAST DOSE ON 15NOV12
     Route: 042
     Dates: start: 20120712, end: 20121115
  2. CARBOPLATIN [Suspect]
     Indication: NON-SMALL CELL LUNG CANCER
     Route: 042
     Dates: start: 20120712, end: 20120920
  3. PACLITAXEL [Suspect]
     Indication: NON-SMALL CELL LUNG CANCER
     Route: 042
     Dates: start: 20120712, end: 20120920
  4. METOPROLOL [Concomitant]
     Dates: start: 20120712
  5. ENALAPRIL [Concomitant]
     Dates: start: 20120712
  6. MAGNESIUM [Concomitant]
     Dates: start: 20121011
  7. OMEPRAZOLE [Concomitant]
  8. ASPIRIN [Concomitant]
  9. MULTIVITAMIN [Concomitant]
  10. FOLIC ACID [Concomitant]
  11. THIAMINE [Concomitant]
  12. SOLU-MEDROL [Concomitant]
     Route: 042
  13. TOPROL XL [Concomitant]
  14. PROTONIX [Concomitant]
  15. ZOFRAN [Concomitant]

REACTIONS (2)
  - Renal failure acute [Not Recovered/Not Resolved]
  - Nephritis allergic [Not Recovered/Not Resolved]
